FAERS Safety Report 10083277 (Version 1)
Quarter: 2014Q2

REPORT INFORMATION
  Report Type: Spontaneous
  Country: US (occurrence: US)
  Receive Date: 20140417
  Receipt Date: 20140417
  Transmission Date: 20141212
  Serious: Yes (Hospitalization, Other)
  Sender: FDA-Public Use
  Company Number: US-AMGEN-USASP2014026639

PATIENT
  Age: 60 Year
  Sex: Female

DRUGS (7)
  1. PROLIA [Suspect]
     Indication: OSTEOPOROSIS
     Dosage: UNK
     Route: 065
     Dates: start: 20140318
  2. RITUXAN [Concomitant]
     Indication: MULTIPLE SCLEROSIS
  3. LOSARTAN [Concomitant]
  4. ZETIA [Concomitant]
  5. BABY ASPIRIN [Concomitant]
  6. PROTONIX [Concomitant]
  7. PLAQUENIL                          /00072602/ [Concomitant]

REACTIONS (11)
  - Multiple sclerosis relapse [Not Recovered/Not Resolved]
  - Blood magnesium abnormal [Unknown]
  - Blood potassium abnormal [Unknown]
  - Hemiparesis [Unknown]
  - Malaise [Not Recovered/Not Resolved]
  - Nausea [Recovering/Resolving]
  - Retching [Unknown]
  - Tremor [Not Recovered/Not Resolved]
  - Headache [Not Recovered/Not Resolved]
  - Vertigo [Recovering/Resolving]
  - Fatigue [Not Recovered/Not Resolved]
